FAERS Safety Report 21693840 (Version 2)
Quarter: 2022Q4

REPORT INFORMATION
  Report Type: Spontaneous
  Country: KR (occurrence: KR)
  Receive Date: 20221207
  Receipt Date: 20221217
  Transmission Date: 20230112
  Serious: Yes (Other)
  Sender: FDA-Public Use
  Company Number: KR-Accord-289751

PATIENT
  Age: 44 Year
  Sex: Male

DRUGS (2)
  1. ETOPOSIDE [Suspect]
     Active Substance: ETOPOSIDE
     Indication: Gastric neuroendocrine carcinoma
  2. CISPLATIN [Suspect]
     Active Substance: CISPLATIN
     Indication: Gastric neuroendocrine carcinoma

REACTIONS (1)
  - Neuropathy peripheral [Unknown]
